FAERS Safety Report 20494550 (Version 2)
Quarter: 2022Q1

REPORT INFORMATION
  Report Type: Spontaneous
  Country: CA (occurrence: None)
  Receive Date: 20220221
  Receipt Date: 20220228
  Transmission Date: 20220423
  Serious: Yes (Other)
  Sender: FDA-Public Use
  Company Number: CA-PFIZER INC-202200268517

PATIENT
  Age: 90 Year
  Sex: Female

DRUGS (1)
  1. METHOTREXATE [Suspect]
     Active Substance: METHOTREXATE
     Indication: Product used for unknown indication
     Dosage: HAD THREE INJECTIONS
     Route: 065

REACTIONS (3)
  - Interstitial lung disease [Unknown]
  - Mouth ulceration [Unknown]
  - Weight decreased [Unknown]
